FAERS Safety Report 20404264 (Version 2)
Quarter: 2022Q1

REPORT INFORMATION
  Report Type: Spontaneous
  Country: US (occurrence: US)
  Receive Date: 20220131
  Receipt Date: 20220207
  Transmission Date: 20220424
  Serious: Yes (Hospitalization, Other)
  Sender: FDA-Public Use
  Company Number: US-CIPLA LTD.-2022US00425

PATIENT

DRUGS (3)
  1. CITALOPRAM [Suspect]
     Active Substance: CITALOPRAM HYDROBROMIDE
     Indication: Depression
     Dosage: UNK
     Route: 065
  2. CLONAZEPAM [Concomitant]
     Active Substance: CLONAZEPAM
     Indication: Depression
     Dosage: UNK
     Route: 065
  3. GLUTATHIONE [Concomitant]
     Active Substance: GLUTATHIONE
     Indication: Supplementation therapy
     Dosage: 5000 MILLIGRAM, QD (DAILY)
     Route: 065

REACTIONS (2)
  - Hepatotoxicity [Unknown]
  - Rhabdomyolysis [Recovering/Resolving]
